FAERS Safety Report 20860526 (Version 1)
Quarter: 2022Q2

REPORT INFORMATION
  Report Type: Spontaneous
  Country: ES (occurrence: None)
  Receive Date: 20220514
  Receipt Date: 20220514
  Transmission Date: 20220721
  Serious: Yes (Disabling, Other)
  Sender: FDA-Public Use
  Company Number: None

PATIENT
  Age: 66 Year
  Sex: Female
  Weight: 60 kg

DRUGS (5)
  1. HALOPERIDOL [Suspect]
     Active Substance: HALOPERIDOL
     Indication: Intentional self-injury
     Route: 048
     Dates: start: 20220324, end: 20220409
  2. MIRTAZAPAINA ARISTO [Concomitant]
  3. RIVOTRIL [Concomitant]
  4. BOREA [Concomitant]
  5. BRINTELLIX [Concomitant]

REACTIONS (3)
  - Aphasia [None]
  - Dysphagia [None]
  - Aphasia [None]

NARRATIVE: CASE EVENT DATE: 20220324
